FAERS Safety Report 17996154 (Version 1)
Quarter: 2020Q3

REPORT INFORMATION
  Report Type: Spontaneous
  Country: US (occurrence: US)
  Receive Date: 20200708
  Receipt Date: 20200708
  Transmission Date: 20201103
  Serious: Yes (Other)
  Sender: FDA-Public Use
  Company Number: US-ASTRAZENECA-2020SE84076

PATIENT
  Age: 64 Year
  Sex: Female

DRUGS (1)
  1. ZOMIG [Suspect]
     Active Substance: ZOLMITRIPTAN
     Indication: MIGRAINE
     Dosage: USE 1 SPRAY IN 1 NOSTRIL AT ONSET OF MIGRAINE. MAY REPEAT IN 2 HOURS IF NEEDED. (DO NOT EXCEED 10...
     Route: 045

REACTIONS (5)
  - Fall [Unknown]
  - Headache [Unknown]
  - Intentional product misuse [Unknown]
  - Joint injury [Unknown]
  - Foot fracture [Unknown]

NARRATIVE: CASE EVENT DATE: 20190827
